FAERS Safety Report 10150379 (Version 4)
Quarter: 2014Q2

REPORT INFORMATION
  Report Type: Report from Study
  Country: US (occurrence: US)
  Receive Date: 20140502
  Receipt Date: 20140614
  Transmission Date: 20141212
  Serious: Yes (Death, Hospitalization, Other)
  Sender: FDA-Public Use
  Company Number: US-ALEXION PHARMACEUTICALS INC.-A201401571

PATIENT
  Sex: 0

DRUGS (5)
  1. SOLIRIS [Suspect]
     Indication: HAEMOLYTIC URAEMIC SYNDROME
     Dosage: 900 MG, QW
     Route: 042
     Dates: start: 20140416
  2. DOPAMINE [Concomitant]
     Indication: SEPSIS
     Route: 065
  3. LEVOPHED [Concomitant]
     Indication: SEPSIS
     Dosage: UNK
     Route: 065
  4. VASOPRESSIN [Concomitant]
     Indication: SEPSIS
     Route: 065
  5. DILAUDID [Concomitant]
     Indication: PAIN
     Route: 065

REACTIONS (13)
  - Multi-organ failure [Fatal]
  - Septic shock [Fatal]
  - Transplant failure [Fatal]
  - Renal failure [Not Recovered/Not Resolved]
  - Cord blood transplant therapy [Unknown]
  - Acute lymphocytic leukaemia [Unknown]
  - Coagulopathy [Unknown]
  - Gastric disorder [Unknown]
  - Blood lactic acid increased [Unknown]
  - Pulmonary oedema [Unknown]
  - Hypotension [Unknown]
  - Supraventricular tachycardia [Unknown]
  - Abdominal distension [Unknown]
